FAERS Safety Report 7980819-0 (Version None)
Quarter: 2011Q4

REPORT INFORMATION
  Report Type: 
  Country: None (occurrence: None)
  Receive Date: 20111214
  Receipt Date: 20111202
  Transmission Date: 20120403
  Serious: Yes (Death, Hospitalization)
  Sender: FDA-Public Use
  Company Number: US-CELGENEUS-163-21880-11120480

PATIENT
  Sex: Female

DRUGS (5)
  1. REVLIMID [Suspect]
     Indication: MULTIPLE MYELOMA
     Dosage: 5 MILLIGRAM
     Route: 048
     Dates: start: 20110426, end: 20110519
  2. CENTRUM [Concomitant]
     Dosage: 1
     Route: 065
     Dates: start: 20070101
  3. GLIPIZIDE [Concomitant]
     Dosage: 2 Q A.M., 2 Q P.M.
     Route: 048
     Dates: start: 20070101
  4. LISINOPRIL [Concomitant]
     Indication: HYPERTENSION
     Dosage: 20 MILLIGRAM
     Route: 065
     Dates: start: 20070101
  5. JANUVIA [Concomitant]
     Dosage: 100 MILLIGRAM
     Route: 065
     Dates: start: 20070101

REACTIONS (2)
  - MULTIPLE MYELOMA [None]
  - PATHOLOGICAL FRACTURE [None]
